FAERS Safety Report 9268279 (Version 1)
Quarter: 2013Q2

REPORT INFORMATION
  Report Type: Spontaneous
  Country: DE (occurrence: DE)
  Receive Date: 20130502
  Receipt Date: 20130502
  Transmission Date: 20140414
  Serious: Yes (Death, Hospitalization)
  Sender: FDA-Public Use
  Company Number: DE-ELI_LILLY_AND_COMPANY-DE201304007175

PATIENT
  Sex: Male

DRUGS (2)
  1. FORSTEO [Suspect]
     Indication: OSTEOPOROSIS
     Dosage: UNK, QD
     Route: 058
     Dates: start: 20120716
  2. INSULIN [Concomitant]

REACTIONS (7)
  - Bronchitis [Fatal]
  - Blood glucose abnormal [Unknown]
  - Pneumonia [Unknown]
  - Blister [Unknown]
  - Asthenia [Unknown]
  - Aphagia [Unknown]
  - Fluid intake reduced [Unknown]
